FAERS Safety Report 8415073-9 (Version None)
Quarter: 2012Q2

REPORT INFORMATION
  Report Type: 
  Country: None (occurrence: None)
  Receive Date: 20120606
  Receipt Date: 20120523
  Transmission Date: 20120825
  Serious: Yes (Death, Hospitalization)
  Sender: FDA-Public Use
  Company Number: DE-RANBAXY-2009RR-26834

PATIENT
  Age: 82 Year
  Sex: Female
  Weight: 83 kg

DRUGS (4)
  1. BIPRETERAX N [Concomitant]
     Indication: HYPERTENSION
     Dosage: 1 DF, QD
     Route: 048
     Dates: start: 20030101
  2. ASPIRIN [Suspect]
     Indication: THROMBOSIS PROPHYLAXIS
     Dosage: 100 MG, QD
     Route: 048
     Dates: start: 19920101
  3. IBUPROFEN [Suspect]
     Indication: PAIN
     Dosage: 600 MG, BID
     Route: 048
     Dates: start: 20090707, end: 20090729
  4. PANTOPRAZOLE [Concomitant]
     Indication: PROPHYLAXIS AGAINST GASTROINTESTINAL ULCER
     Dosage: 20 MG, QD
     Route: 048
     Dates: start: 20090707

REACTIONS (1)
  - COLITIS [None]
